FAERS Safety Report 8540374-3 (Version None)
Quarter: 2012Q3

REPORT INFORMATION
  Report Type: 
  Country: None (occurrence: None)
  Receive Date: 20120726
  Receipt Date: 20120112
  Transmission Date: 20120928
  Serious: No
  Sender: FDA-Public Use
  Company Number: US-ASTRAZENECA-2010SE55758

PATIENT
  Age: 25 Year
  Sex: Female
  Weight: 81.6 kg

DRUGS (9)
  1. KLONOPIN [Concomitant]
  2. SEROQUEL [Suspect]
     Indication: INSOMNIA
     Route: 048
     Dates: start: 20070101
  3. SEROQUEL [Suspect]
     Route: 048
  4. LAMICTAL [Concomitant]
     Indication: BIPOLAR DISORDER
  5. ABILIFY [Concomitant]
     Indication: DEPRESSION
  6. ADDERALL 5 [Concomitant]
     Indication: ATTENTION DEFICIT/HYPERACTIVITY DISORDER
  7. WELLBUTRIN [Concomitant]
     Indication: DEPRESSION
  8. SEROQUEL [Suspect]
     Route: 048
     Dates: start: 20101118
  9. ABILIFY [Concomitant]
     Indication: MOOD SWINGS

REACTIONS (7)
  - DRUG PRESCRIBING ERROR [None]
  - ABNORMAL DREAMS [None]
  - WEIGHT INCREASED [None]
  - CIRCUMSTANCE OR INFORMATION CAPABLE OF LEADING TO MEDICATION ERROR [None]
  - INTENTIONAL DRUG MISUSE [None]
  - MATERNAL EXPOSURE DURING PREGNANCY [None]
  - INCORRECT DOSE ADMINISTERED [None]
